FAERS Safety Report 11597504 (Version 1)
Quarter: 2015Q3

REPORT INFORMATION
  Report Type: Spontaneous
  Country: US (occurrence: US)
  Receive Date: 20150916
  Receipt Date: 20150916
  Transmission Date: 20151125
  Serious: No
  Sender: FDA-Public Use
  Company Number: US-ELI_LILLY_AND_COMPANY-US200801004328

PATIENT
  Age: 73 Year
  Sex: Female

DRUGS (4)
  1. FORTEO [Suspect]
     Active Substance: TERIPARATIDE
     Indication: BONE DISORDER
     Dosage: UNK, UNK
     Dates: start: 20080116, end: 20080209
  2. BENAZEPRIL [Concomitant]
     Active Substance: BENAZEPRIL HYDROCHLORIDE
     Dosage: 30 MG, EACH EVENING
  3. VITAMINS [Concomitant]
     Active Substance: VITAMINS
  4. ESTRACE [Concomitant]
     Active Substance: ESTRADIOL
     Dosage: UNK, DAILY (1/D)

REACTIONS (9)
  - Dizziness [Recovered/Resolved]
  - Gait disturbance [Unknown]
  - Blood pressure decreased [Recovered/Resolved]
  - Arthralgia [Not Recovered/Not Resolved]
  - Feeling abnormal [Recovered/Resolved]
  - Injection site pain [Recovered/Resolved]
  - Hypoaesthesia [Unknown]
  - Heart rate decreased [Recovered/Resolved]
  - Myalgia [Not Recovered/Not Resolved]

NARRATIVE: CASE EVENT DATE: 2008
